FAERS Safety Report 4944541-7 (Version None)
Quarter: 2006Q1

REPORT INFORMATION
  Report Type: 
  Country: None (occurrence: None)
  Receive Date: 20060123
  Receipt Date: 20051214
  Transmission Date: 20060701
  Serious: No
  Sender: FDA-Public Use
  Company Number: 2005-BP-20604BP

PATIENT
  Sex: Female

DRUGS (5)
  1. APTIVUS [Suspect]
     Indication: HIV INFECTION
     Dosage: SEE TEXT 80 MG/ML RITONAVIR ORAL SOLUTION THROUGH PEG TUBE PO
     Route: 048
  2. FUZEON [Concomitant]
  3. TRUVADA (TRUVADA) [Concomitant]
  4. VALCYTE [Concomitant]
  5. DAPSONE [Concomitant]

REACTIONS (3)
  - DRUG INTOLERANCE [None]
  - NAUSEA [None]
  - VOMITING [None]
